FAERS Safety Report 8510936-8 (Version None)
Quarter: 2012Q3

REPORT INFORMATION
  Report Type: 
  Country: None (occurrence: None)
  Receive Date: 20120716
  Receipt Date: 20120705
  Transmission Date: 20120928
  Serious: Yes (Other)
  Sender: FDA-Public Use
  Company Number: ES-JNJFOC-20120706380

PATIENT
  Age: 45 Year
  Sex: Female

DRUGS (3)
  1. NOLOTIL [Concomitant]
     Indication: PREMEDICATION
     Route: 065
     Dates: start: 20110101
  2. LEXATIN [Concomitant]
     Indication: ANXIETY
     Route: 065
  3. REMICADE [Suspect]
     Indication: ANKYLOSING SPONDYLITIS
     Route: 042
     Dates: start: 20110101, end: 20110901

REACTIONS (3)
  - MECHANICAL URTICARIA [None]
  - ANXIETY [None]
  - STRONGYLOIDIASIS [None]
